FAERS Safety Report 9081689 (Version 1)
Quarter: 2013Q1

REPORT INFORMATION
  Report Type: Spontaneous
  Country: US (occurrence: US)
  Receive Date: 20130130
  Receipt Date: 20130130
  Transmission Date: 20140127
  Serious: No
  Sender: FDA-Public Use
  Company Number: US-ABBOTT-12P-163-0953324-00

PATIENT
  Age: 71 Year
  Sex: Female
  Weight: 110.78 kg

DRUGS (10)
  1. HUMIRA 40 MG/0.8 ML PEN [Suspect]
     Indication: RHEUMATOID ARTHRITIS
     Dates: start: 2009
  2. INSULIN [Concomitant]
     Indication: DIABETES MELLITUS
     Dosage: SLIDING SCALE
  3. AMITRIPTYLINE [Concomitant]
     Indication: ANXIETY
  4. METFORMIN ER [Concomitant]
     Indication: DIABETES MELLITUS
  5. LISINOPRIL [Concomitant]
     Indication: PRODUCT USED FOR UNKNOWN INDICATION
  6. POTASSIUM CHLORIDE [Concomitant]
     Indication: PRODUCT USED FOR UNKNOWN INDICATION
  7. ERGO VIT D [Concomitant]
     Indication: PRODUCT USED FOR UNKNOWN INDICATION
  8. LOSARTAN [Concomitant]
     Indication: PRODUCT USED FOR UNKNOWN INDICATION
  9. VYTORIN [Concomitant]
     Indication: BLOOD CHOLESTEROL INCREASED
     Dosage: 10/80MG
  10. ASPIRIN [Concomitant]
     Indication: PRODUCT USED FOR UNKNOWN INDICATION

REACTIONS (3)
  - Device malfunction [Not Recovered/Not Resolved]
  - Incorrect dose administered [Not Recovered/Not Resolved]
  - Arthralgia [Not Recovered/Not Resolved]
